FAERS Safety Report 24539935 (Version 2)
Quarter: 2024Q4

REPORT INFORMATION
  Report Type: Spontaneous
  Country: JP (occurrence: JP)
  Receive Date: 20241023
  Receipt Date: 20241105
  Transmission Date: 20250114
  Serious: Yes (Life-Threatening, Other)
  Sender: ALEXION PHARMACEUTICALS
  Company Number: JP-ASTRAZENECA-240108515_064320_P_1

PATIENT
  Age: 75 Year

DRUGS (8)
  1. ANDEXXA [Suspect]
     Active Substance: ANDEXANET ALFA
     Indication: Haemorrhage intracranial
     Dosage: 200 MILLIGRAM
  2. ANDEXXA [Suspect]
     Active Substance: ANDEXANET ALFA
     Dosage: 200 MILLIGRAM
  3. ANDEXXA [Suspect]
     Active Substance: ANDEXANET ALFA
     Dosage: 200 MILLIGRAM
  4. ANDEXXA [Suspect]
     Active Substance: ANDEXANET ALFA
     Dosage: 200 MILLIGRAM
  5. ANDEXXA [Suspect]
     Active Substance: ANDEXANET ALFA
     Dosage: SEE NARRATIVE
  6. ANDEXXA [Suspect]
     Active Substance: ANDEXANET ALFA
     Dosage: SEE NARRATIVE
  7. ANDEXXA [Suspect]
     Active Substance: ANDEXANET ALFA
     Dosage: SEE NARRATIVE
  8. ANDEXXA [Suspect]
     Active Substance: ANDEXANET ALFA
     Dosage: SEE NARRATIVE

REACTIONS (2)
  - Cardiac arrest [Recovered/Resolved]
  - Haematoma [Recovered/Resolved with Sequelae]
